FAERS Safety Report 4628323-1 (Version None)
Quarter: 2005Q2

REPORT INFORMATION
  Report Type: 
  Country: None (occurrence: None)
  Receive Date: 20050406
  Receipt Date: 20040514
  Transmission Date: 20051028
  Serious: Yes (Hospitalization)
  Sender: FDA-Public Use
  Company Number: US-AMGEN-US076728

PATIENT
  Sex: Male

DRUGS (1)
  1. ETANERCEPT [Suspect]
     Indication: PSORIASIS
     Route: 058
     Dates: start: 20040415, end: 20040510

REACTIONS (2)
  - CONDITION AGGRAVATED [None]
  - DIVERTICULITIS [None]
